FAERS Safety Report 14513571 (Version 1)
Quarter: 2018Q1

REPORT INFORMATION
  Report Type: Spontaneous
  Country: US (occurrence: US)
  Receive Date: 20180209
  Receipt Date: 20180209
  Transmission Date: 20180509
  Serious: No
  Sender: FDA-Public Use
  Company Number: US-ALLERGAN-1701864US

PATIENT
  Sex: Female

DRUGS (2)
  1. RESTASIS [Suspect]
     Active Substance: CYCLOSPORINE
     Indication: DRY EYE
     Dosage: 1 DROP, TWICE DAILY
     Route: 047
  2. ARTIFICIAL TEARS [Concomitant]
     Active Substance: GLYCERIN\HYPROMELLOSES\POLYETHYLENE GLYCOL 400
     Indication: DRY EYE
     Dosage: UNK, QD
     Route: 047

REACTIONS (6)
  - Vision blurred [Recovering/Resolving]
  - Eyelid ptosis [Recovering/Resolving]
  - Foreign body sensation in eyes [Recovering/Resolving]
  - Drug ineffective [Unknown]
  - Eye irritation [Recovering/Resolving]
  - Astigmatism [Recovering/Resolving]
